FAERS Safety Report 16687132 (Version 1)
Quarter: 2019Q3

REPORT INFORMATION
  Report Type: Spontaneous
  Country: US (occurrence: US)
  Receive Date: 20190809
  Receipt Date: 20190809
  Transmission Date: 20191004
  Serious: Yes (Life-Threatening, Hospitalization)
  Sender: FDA-Public Use
  Company Number: US-ELI_LILLY_AND_COMPANY-US201908003246

PATIENT
  Sex: Female

DRUGS (1)
  1. HUMALOG [Suspect]
     Active Substance: INSULIN LISPRO
     Indication: DIABETES MELLITUS
     Dosage: 10 U, OTHER (7-10 TIMES A DAY)
     Route: 065
     Dates: start: 201802

REACTIONS (10)
  - Coma [Recovering/Resolving]
  - Altered state of consciousness [Recovered/Resolved]
  - Cardiac arrest [Recovering/Resolving]
  - Malaise [Recovering/Resolving]
  - Breast pain [Recovered/Resolved]
  - Musculoskeletal chest pain [Recovered/Resolved]
  - Vomiting [Recovered/Resolved]
  - Chest pain [Recovered/Resolved]
  - Disorientation [Recovered/Resolved]
  - Vision blurred [Recovered/Resolved]

NARRATIVE: CASE EVENT DATE: 2018
